FAERS Safety Report 7688430-6 (Version None)
Quarter: 2011Q3

REPORT INFORMATION
  Report Type: 
  Country: None (occurrence: None)
  Receive Date: 20110817
  Receipt Date: 20110804
  Transmission Date: 20111222
  Serious: Yes (Hospitalization)
  Sender: FDA-Public Use
  Company Number: AT-ROCHE-795160

PATIENT
  Sex: Female
  Weight: 67 kg

DRUGS (3)
  1. TREANDA [Concomitant]
  2. IBANDRONATE SODIUM [Suspect]
     Dosage: FREQUENCY: TWO TIMES
     Route: 042
     Dates: start: 20110509
  3. DEXAMETHASONE [Concomitant]

REACTIONS (1)
  - FIBROSIS [None]
